FAERS Safety Report 18037153 (Version 2)
Quarter: 2020Q3

REPORT INFORMATION
  Report Type: Spontaneous
  Country: US (occurrence: US)
  Receive Date: 20200717
  Receipt Date: 20200717
  Transmission Date: 20201103
  Serious: No
  Sender: FDA-Public Use
  Company Number: US-PFIZER INC-2020270688

PATIENT
  Age: 76 Year
  Sex: Female
  Weight: 64.86 kg

DRUGS (1)
  1. PREMARIN [Suspect]
     Active Substance: ESTROGENS, CONJUGATED
     Indication: URINARY TRACT INFECTION
     Dosage: 1 G, 2X/WEEK (1 G PER VAGINA S/THUR AT BEDTIME)
     Route: 067
     Dates: start: 20200608

REACTIONS (4)
  - Product use in unapproved indication [Unknown]
  - Visual impairment [Unknown]
  - Condition aggravated [Unknown]
  - Off label use [Unknown]

NARRATIVE: CASE EVENT DATE: 20200608
